APPROVED DRUG PRODUCT: GLIPIZIDE AND METFORMIN HYDROCHLORIDE
Active Ingredient: GLIPIZIDE; METFORMIN HYDROCHLORIDE
Strength: 5MG;500MG
Dosage Form/Route: TABLET;ORAL
Application: A078905 | Product #003 | TE Code: AB
Applicant: ZYDUS PHARMACEUTICALS USA INC
Approved: Jan 31, 2011 | RLD: No | RS: No | Type: RX